FAERS Safety Report 21784619 (Version 1)
Quarter: 2022Q4

REPORT INFORMATION
  Report Type: Spontaneous
  Country: GB (occurrence: GB)
  Receive Date: 20221227
  Receipt Date: 20221227
  Transmission Date: 20230113
  Serious: Yes (Other)
  Sender: FDA-Public Use
  Company Number: None

PATIENT
  Age: 66 Year
  Sex: Female
  Weight: 73 kg

DRUGS (5)
  1. FUROSEMIDE [Suspect]
     Active Substance: FUROSEMIDE
     Dosage: UNK
     Route: 030
  2. CITALOPRAM [Concomitant]
     Active Substance: CITALOPRAM HYDROBROMIDE
     Dosage: TAKE ONE DAILY FOR 5 WEEKS AND 1 ON ALTERNATE DAYS THEREAFTER
     Route: 065
     Dates: start: 20221128
  3. LEVOTHYROXINE [Concomitant]
     Active Substance: LEVOTHYROXINE
     Dosage: 1 TABLET ONCE A DAY
     Route: 065
     Dates: start: 20221017
  4. OMEPRAZOLE [Concomitant]
     Active Substance: OMEPRAZOLE
     Dosage: 1 CAPSULE ONCE A DAY
     Route: 065
     Dates: start: 20221129
  5. VALSARTAN [Concomitant]
     Active Substance: VALSARTAN
     Dosage: TAKE 2 DAILY
     Route: 065
     Dates: start: 20221027

REACTIONS (1)
  - Hypokalaemia [Recovering/Resolving]
